FAERS Safety Report 20779133 (Version 1)
Quarter: 2022Q2

REPORT INFORMATION
  Report Type: Spontaneous
  Country: JP (occurrence: JP)
  Receive Date: 20220503
  Receipt Date: 20220503
  Transmission Date: 20220721
  Serious: Yes (Death, Other)
  Sender: FDA-Public Use
  Company Number: JP-TEVA-2022-JP-2033021

PATIENT
  Age: 63 Year
  Sex: Male

DRUGS (23)
  1. PREDNISOLONE [Suspect]
     Active Substance: PREDNISOLONE
     Indication: Diffuse large B-cell lymphoma
     Dosage: SEVEN COURSES
     Route: 065
     Dates: start: 2007
  2. PREDNISOLONE [Suspect]
     Active Substance: PREDNISOLONE
     Dosage: ONE COURSE
     Route: 065
     Dates: start: 2013
  3. ETOPOSIDE [Suspect]
     Active Substance: ETOPOSIDE
     Indication: Diffuse large B-cell lymphoma
     Dosage: THREE COURSES
     Route: 065
     Dates: start: 2012
  4. ETOPOSIDE [Suspect]
     Active Substance: ETOPOSIDE
     Dosage: HIGH-DOSE CHEMOTHERAPY
     Route: 065
     Dates: start: 2012
  5. ETOPOSIDE [Suspect]
     Active Substance: ETOPOSIDE
     Dosage: ONE COURSE
     Route: 065
     Dates: start: 2013
  6. CYTARABINE [Suspect]
     Active Substance: CYTARABINE
     Indication: Diffuse large B-cell lymphoma
     Dosage: THREE COURSES
     Route: 065
     Dates: start: 2012
  7. CYTARABINE [Suspect]
     Active Substance: CYTARABINE
     Dosage: HIGH-DOSE CHEMOTHERAPY
     Route: 065
     Dates: start: 2012
  8. VINCRISTINE [Suspect]
     Active Substance: VINCRISTINE
     Indication: Diffuse large B-cell lymphoma
     Dosage: SEVEN COURSES
     Route: 065
     Dates: start: 2007
  9. VINCRISTINE [Suspect]
     Active Substance: VINCRISTINE
     Dosage: ONE COURSE
     Route: 065
     Dates: start: 2013
  10. RITUXIMAB [Suspect]
     Active Substance: RITUXIMAB
     Indication: Diffuse large B-cell lymphoma
     Dosage: SEVEN COURSES
     Route: 065
     Dates: start: 2007
  11. RITUXIMAB [Suspect]
     Active Substance: RITUXIMAB
     Dosage: FOUR COURSES
     Route: 065
     Dates: start: 2010
  12. RITUXIMAB [Suspect]
     Active Substance: RITUXIMAB
     Dosage: THREE COURSES
     Route: 065
     Dates: start: 2012
  13. CYCLOPHOSPHAMIDE [Suspect]
     Active Substance: CYCLOPHOSPHAMIDE
     Indication: Diffuse large B-cell lymphoma
     Dosage: SEVEN COURSES
     Route: 065
     Dates: start: 2007
  14. CYCLOPHOSPHAMIDE [Suspect]
     Active Substance: CYCLOPHOSPHAMIDE
     Dosage: ONE COURSE
     Route: 065
     Dates: start: 2013
  15. DOXORUBICIN [Suspect]
     Active Substance: DOXORUBICIN
     Indication: Diffuse large B-cell lymphoma
     Dosage: SEVEN COURSES
     Route: 065
     Dates: start: 2007
  16. DOXORUBICIN [Suspect]
     Active Substance: DOXORUBICIN
     Dosage: ONE COURSE
     Route: 065
     Dates: start: 2013
  17. CISPLATIN [Suspect]
     Active Substance: CISPLATIN
     Indication: Diffuse large B-cell lymphoma
     Dosage: THREE COURSES
     Route: 065
     Dates: start: 2012
  18. METHYLPREDNISOLONE [Suspect]
     Active Substance: METHYLPREDNISOLONE
     Indication: Diffuse large B-cell lymphoma
     Dosage: THREE COURSES
     Route: 065
     Dates: start: 2012
  19. MELPHALAN [Suspect]
     Active Substance: MELPHALAN
     Indication: Diffuse large B-cell lymphoma
     Dosage: HIGH-DOSE CHEMOTHERAPY
     Route: 065
     Dates: start: 2012
  20. ATOVAQUONE [Suspect]
     Active Substance: ATOVAQUONE
     Indication: Toxoplasmosis
     Route: 065
     Dates: start: 2013
  21. ATOVAQUONE [Suspect]
     Active Substance: ATOVAQUONE
     Indication: Infection reactivation
  22. ATOVAQUONE [Suspect]
     Active Substance: ATOVAQUONE
     Indication: Lung disorder
  23. ATOVAQUONE [Suspect]
     Active Substance: ATOVAQUONE
     Indication: Toxoplasmosis

REACTIONS (6)
  - Toxoplasmosis [Fatal]
  - Toxoplasmosis [Fatal]
  - Infection reactivation [Fatal]
  - Lung disorder [Fatal]
  - Drug ineffective [Fatal]
  - Respiratory failure [Unknown]

NARRATIVE: CASE EVENT DATE: 20130101
